FAERS Safety Report 4732285-6 (Version None)
Quarter: 2005Q3

REPORT INFORMATION
  Report Type: 
  Country: None (occurrence: None)
  Receive Date: 20050726
  Receipt Date: 20040517
  Transmission Date: 20060218
  Serious: Yes (Hospitalization)
  Sender: FDA-Public Use
  Company Number: 04EST0056

PATIENT
  Age: 58 Year
  Sex: Male

DRUGS (6)
  1. AGGRASTAT [Suspect]
     Indication: PLATELET AGGREGATION INHIBITION
     Dosage: 0.25 MG/ML, INTRAVENOUS
     Route: 042
     Dates: start: 20040204, end: 20040205
  2. CLOPIDOGREL BISULFATE [Concomitant]
  3. ASPIRIN [Concomitant]
  4. HEPARIN [Concomitant]
  5. METOPROLOL [Concomitant]
  6. SIMVASTATIN [Concomitant]

REACTIONS (1)
  - THROMBOCYTOPENIA [None]
